FAERS Safety Report 6450344-7 (Version None)
Quarter: 2009Q4

REPORT INFORMATION
  Report Type: 
  Country: None (occurrence: None)
  Receive Date: 20091116
  Receipt Date: 20090930
  Transmission Date: 20100525
  Serious: No
  Sender: FDA-Public Use
  Company Number: WAES 0910USA00012

PATIENT
  Sex: Male

DRUGS (2)
  1. ISENTRESS [Suspect]
     Indication: HIV INFECTION
     Dosage: 400 MG BID PO
     Route: 048
     Dates: start: 20090819, end: 20090801
  2. TRUVADA [Concomitant]

REACTIONS (2)
  - HEPATIC ENZYME INCREASED [None]
  - IMMUNE RECONSTITUTION SYNDROME [None]
